FAERS Safety Report 7526249-7 (Version None)
Quarter: 2011Q2

REPORT INFORMATION
  Report Type: 
  Country: None (occurrence: None)
  Receive Date: 20110606
  Receipt Date: 20110526
  Transmission Date: 20111010
  Serious: Yes (Other)
  Sender: FDA-Public Use
  Company Number: PHHY2011ES45737

PATIENT
  Sex: Male

DRUGS (14)
  1. DEXAMETHASONE [Suspect]
     Dosage: 20 MG/WEEK
  2. CYCLOPHOSPHAMIDE [Suspect]
  3. HEPARIN [Suspect]
     Indication: THROMBOSIS PROPHYLAXIS
  4. PREDNISONE [Suspect]
  5. DEXAMETHASONE [Suspect]
     Indication: MULTIPLE MYELOMA
     Dosage: 40 MG, UNK
  6. ZOLEDRONIC ACID [Suspect]
     Dosage: 4 MG/MONTH
  7. LENALIDOMIDE [Suspect]
     Indication: MULTIPLE MYELOMA
     Dosage: 25 MG/DAY
  8. DOXORUBICIN HCL [Suspect]
  9. MELPHALAN HYDROCHLORIDE [Suspect]
  10. ASPIRIN [Suspect]
  11. LENALIDOMIDE [Suspect]
     Dosage: 10 MG/DAY
  12. RADIATION THERAPY [Suspect]
  13. VINCRISTINE [Suspect]
  14. CARMUSTINE [Suspect]

REACTIONS (9)
  - THROMBOCYTOPENIA [None]
  - MYOPATHY [None]
  - HYPERGLYCAEMIA [None]
  - ASTHENIA [None]
  - BACK PAIN [None]
  - ANAEMIA [None]
  - DISEASE PROGRESSION [None]
  - SPINAL CORD COMPRESSION [None]
  - RESPIRATORY TRACT INFECTION [None]
